FAERS Safety Report 6099058-6 (Version None)
Quarter: 2009Q1

REPORT INFORMATION
  Report Type: 
  Country: None (occurrence: None)
  Receive Date: 20090302
  Receipt Date: 20090220
  Transmission Date: 20090719
  Serious: Yes (Death)
  Sender: FDA-Public Use
  Company Number: US-ELI_LILLY_AND_COMPANY-US200812004474

PATIENT
  Sex: Male
  Weight: 78.458 kg

DRUGS (15)
  1. ZYPREXA [Suspect]
     Indication: ANXIETY
     Dosage: 10 MG, EACH EVENING
     Route: 048
     Dates: start: 20070212
  2. ZYPREXA [Suspect]
     Dosage: 15 MG, EACH EVENING
     Route: 048
     Dates: start: 20081013
  3. CYMBALTA [Suspect]
     Indication: FAILURE TO THRIVE
     Dosage: 60 MG, DAILY (1/D)
     Route: 048
     Dates: start: 20050624
  4. CYMBALTA [Suspect]
     Dosage: 60 MG, 2/D
     Route: 048
     Dates: start: 20060915
  5. SYNTHROID [Concomitant]
     Dosage: 100 UG, DAILY (1/D)
  6. LYRICA [Concomitant]
     Dosage: 150 MG, 3/D
  7. CYTOMEL [Concomitant]
     Dosage: 5 UG, DAILY (1/D)
  8. DILAUDID [Concomitant]
     Dosage: 4 MG, AS NEEDED
  9. TESTOSTERONE [Concomitant]
     Dosage: 200 MG, OTHER
  10. MS CONTIN [Concomitant]
  11. PROVIGIL [Concomitant]
     Dosage: 1 D/F, AS NEEDED
  12. VITAMIN B-12 [Concomitant]
     Dosage: 1000 UG, OTHER
     Route: 030
  13. ACIPHEX [Concomitant]
     Dosage: 20 MG, 2/D
  14. CLONOPIN [Concomitant]
     Dosage: 1 MG, EACH EVENING
  15. VITAMIN D [Concomitant]
     Dosage: 1 D/F, 3/W

REACTIONS (1)
  - CHRONIC OBSTRUCTIVE PULMONARY DISEASE [None]
